FAERS Safety Report 15840210 (Version 3)
Quarter: 2019Q2

REPORT INFORMATION
  Report Type: Report from Study
  Country: PE (occurrence: PE)
  Receive Date: 20190117
  Receipt Date: 20190625
  Transmission Date: 20190711
  Serious: Yes (Other)
  Sender: FDA-Public Use
  Company Number: PHHY2019PE007512

PATIENT
  Age: 73 Year
  Sex: Male

DRUGS (1)
  1. AFINITOR [Suspect]
     Active Substance: EVEROLIMUS
     Indication: RENAL CANCER
     Dosage: 10 MG, QD
     Route: 048
     Dates: start: 20181204

REACTIONS (4)
  - Gingival swelling [Unknown]
  - Tooth infection [Recovering/Resolving]
  - Cell death [Unknown]
  - Necrosis [Recovering/Resolving]

NARRATIVE: CASE EVENT DATE: 20190102
